FAERS Safety Report 5640598-9 (Version None)
Quarter: 2008Q1

REPORT INFORMATION
  Report Type: 
  Country: None (occurrence: None)
  Receive Date: 20080227
  Receipt Date: 20080219
  Transmission Date: 20080703
  Serious: Yes (Other)
  Sender: FDA-Public Use
  Company Number: PHBS2008US02422

PATIENT
  Age: 58 Year
  Sex: Male

DRUGS (7)
  1. METOPROLOL TARTRATE [Suspect]
  2. DOCUSATE [Concomitant]
  3. LEVOTHYROXINE SODIUM [Concomitant]
  4. SIMVASTATIN [Concomitant]
  5. EZETIMIBE [Concomitant]
  6. ASPIRIN [Concomitant]
  7. DIPHENHYDRAMINE HCL [Concomitant]

REACTIONS (9)
  - AURICULAR SWELLING [None]
  - EAR PAIN [None]
  - ERYTHEMA [None]
  - EYE PRURITUS [None]
  - HYPOACUSIS [None]
  - OCULAR HYPERAEMIA [None]
  - POLYCHONDRITIS [None]
  - SCAB [None]
  - TENDERNESS [None]
